FAERS Safety Report 10644775 (Version 1)
Quarter: 2014Q4

REPORT INFORMATION
  Report Type: Report from Study
  Country: JP (occurrence: JP)
  Receive Date: 20141211
  Receipt Date: 20141211
  Transmission Date: 20150529
  Serious: Yes (Other)
  Sender: FDA-Public Use
  Company Number: JP-MERCK-1412JPN001417

PATIENT
  Age: 66 Year
  Sex: Male
  Weight: 69 kg

DRUGS (9)
  1. URSO [Concomitant]
     Active Substance: URSODIOL
     Indication: CHRONIC HEPATITIS C
     Dosage: 300 MG, QD
     Route: 048
  2. PEGINTRON [Suspect]
     Active Substance: PEGINTERFERON ALFA-2B
     Dosage: 0.75 MICROGRAM PER KILOGRAM, QW
     Route: 058
     Dates: start: 20140702, end: 20140702
  3. PEGINTRON [Suspect]
     Active Substance: PEGINTERFERON ALFA-2B
     Dosage: 1.0 MICROGRAM PER KILOGRAM, QW
     Route: 058
     Dates: start: 20140716, end: 20140723
  4. PEGINTRON [Suspect]
     Active Substance: PEGINTERFERON ALFA-2B
     Dosage: 1.0 MICROGRAM PER KILOGRAM, QW
     Route: 058
     Dates: start: 20140806
  5. PEGINTRON [Suspect]
     Active Substance: PEGINTERFERON ALFA-2B
     Indication: CHRONIC HEPATITIS C
     Dosage: 1.5 MICROGRAM PER KILOGRAM, QW
     Route: 058
     Dates: start: 20140521, end: 20140625
  6. SIMEPREVIR [Suspect]
     Active Substance: SIMEPREVIR
     Indication: CHRONIC HEPATITIS C
     Dosage: 100 MG, QD
     Route: 048
     Dates: start: 20140521, end: 20140813
  7. PEGINTRON [Suspect]
     Active Substance: PEGINTERFERON ALFA-2B
     Dosage: 1.2 MICROGRAM PER KILOGRAM, QW
     Route: 058
     Dates: start: 20140730, end: 20140730
  8. RIBAVIRIN. [Suspect]
     Active Substance: RIBAVIRIN
     Indication: CHRONIC HEPATITIS C
     Dosage: 800 MG, QD
     Route: 048
     Dates: start: 20140521
  9. PEGINTRON [Suspect]
     Active Substance: PEGINTERFERON ALFA-2B
     Dosage: 0.9 MICROGRAM PER KILOGRAM, QW
     Route: 058
     Dates: start: 20140709, end: 20140709

REACTIONS (3)
  - Pyrexia [Recovering/Resolving]
  - Heat illness [Recovered/Resolved]
  - Neutrophil count decreased [Recovered/Resolved]

NARRATIVE: CASE EVENT DATE: 2014
